FAERS Safety Report 8822383 (Version 1)
Quarter: 2012Q4

REPORT INFORMATION
  Report Type: 
  Country: ES (occurrence: ES)
  Receive Date: 20121003
  Receipt Date: 20121003
  Transmission Date: 20130627
  Serious: Yes (Other)
  Sender: FDA-Public Use
  Company Number: PHHY2012ES083987

PATIENT
  Age: 61 Year
  Sex: Male

DRUGS (3)
  1. EXJADE [Suspect]
     Indication: MYELODYSPLASTIC SYNDROME
     Dosage: 500 mg, per day
     Route: 048
     Dates: start: 20120914, end: 20120915
  2. EXJADE [Suspect]
     Indication: IRON OVERLOAD
     Dosage: 125 mg, per day
     Route: 048
     Dates: start: 20120925
  3. AZACITIDINE [Concomitant]

REACTIONS (1)
  - Rash maculo-papular [Recovered/Resolved]
